FAERS Safety Report 16564849 (Version 1)
Quarter: 2019Q3

REPORT INFORMATION
  Report Type: Spontaneous
  Country: US (occurrence: US)
  Receive Date: 20190712
  Receipt Date: 20190712
  Transmission Date: 20191004
  Serious: Yes (Other)
  Sender: FDA-Public Use
  Company Number: US-ELI_LILLY_AND_COMPANY-US201907002244

PATIENT
  Sex: Female

DRUGS (2)
  1. HUMALOG [Suspect]
     Active Substance: INSULIN LISPRO
     Indication: DIABETES MELLITUS
     Dosage: 25 U, PRN
     Route: 065
     Dates: start: 1984
  2. GEODON [ZIPRASIDONE MESILATE] [Concomitant]
     Indication: SCHIZOPHRENIA

REACTIONS (2)
  - Paranoia [Unknown]
  - Blood glucose increased [Recovering/Resolving]
